FAERS Safety Report 8843261 (Version 1)
Quarter: 2012Q4

REPORT INFORMATION
  Report Type: 
  Country: CN (occurrence: CN)
  Receive Date: 20121016
  Receipt Date: 20121016
  Transmission Date: 20130627
  Serious: Yes (Death, Other)
  Sender: FDA-Public Use
  Company Number: PHHY2012CN091491

PATIENT

DRUGS (6)
  1. METHYLPREDNISOLONE [Suspect]
     Indication: GRAFT VERSUS HOST DISEASE
     Dosage: 15-50 mg/kg per day
  2. METHYLPREDNISOLONE [Suspect]
     Dosage: 2-5 mg/kg per day
     Route: 042
  3. METHYLPREDNISOLONE [Suspect]
     Dosage: 1-2 mg/kg per day
  4. MYCOPHENOLATE MOFETIL [Suspect]
     Indication: GRAFT VERSUS HOST DISEASE
     Dosage: 30 mg/kg per day
  5. MYCOPHENOLATE MOFETIL [Suspect]
     Dosage: 0.5-1 g per day
  6. TACROLIMUS [Suspect]
     Indication: GRAFT VERSUS HOST DISEASE

REACTIONS (6)
  - Pneumonia cytomegaloviral [Fatal]
  - Jaundice [Recovering/Resolving]
  - Transaminases increased [Unknown]
  - Skin hypopigmentation [Unknown]
  - Blood urea increased [Unknown]
  - Rash [Unknown]
